FAERS Safety Report 11619898 (Version 3)
Quarter: 2019Q1

REPORT INFORMATION
  Report Type: Spontaneous
  Country: US (occurrence: US)
  Receive Date: 20151012
  Receipt Date: 20190325
  Transmission Date: 20190417
  Serious: No
  Sender: FDA-Public Use
  Company Number: US-PFIZER INC-2015334507

PATIENT
  Age: 67 Year
  Sex: Female

DRUGS (1)
  1. BOSULIF [Suspect]
     Active Substance: BOSUTINIB MONOHYDRATE
     Indication: ACUTE MYELOID LEUKAEMIA
     Dosage: 300 MG, 1X/DAY
     Route: 048
     Dates: start: 20150910

REACTIONS (3)
  - Vertigo [Unknown]
  - Fluid retention [Unknown]
  - Diarrhoea [Unknown]

NARRATIVE: CASE EVENT DATE: 20151005
